FAERS Safety Report 20561679 (Version 1)
Quarter: 2022Q1

REPORT INFORMATION
  Report Type: Spontaneous
  Country: US (occurrence: None)
  Receive Date: 20220305
  Receipt Date: 20220305
  Transmission Date: 20220423
  Serious: Yes (Other)
  Sender: FDA-Public Use
  Company Number: None

PATIENT
  Age: 48 Year
  Sex: Female
  Weight: 72 kg

DRUGS (7)
  1. BUPRENORPHINE BUCCAL FILM [Suspect]
     Active Substance: BUPRENORPHINE HYDROCHLORIDE
     Indication: Pain
     Dosage: OTHER QUANTITY : 1 OTHER;?FREQUENCY : EVERY 12 HOURS;?
     Route: 060
  2. Lamectal [Concomitant]
  3. OXYCODONE [Concomitant]
     Active Substance: OXYCODONE
  4. CLONIDINE [Concomitant]
     Active Substance: CLONIDINE
  5. ZANAFLEX [Concomitant]
     Active Substance: TIZANIDINE HYDROCHLORIDE
  6. AMITRIPTYLINE [Concomitant]
     Active Substance: AMITRIPTYLINE
  7. VITAMINS [Concomitant]
     Active Substance: VITAMINS

REACTIONS (3)
  - Tooth extraction [None]
  - Abscess oral [None]
  - Tooth disorder [None]

NARRATIVE: CASE EVENT DATE: 20220301
